FAERS Safety Report 9919555 (Version 4)
Quarter: 2014Q2

REPORT INFORMATION
  Report Type: Spontaneous
  Country: US (occurrence: US)
  Receive Date: 20140224
  Receipt Date: 20140516
  Transmission Date: 20141212
  Serious: Yes (Other)
  Sender: FDA-Public Use
  Company Number: US-PFIZER INC-2014052683

PATIENT
  Age: 50 Year
  Sex: Female
  Weight: 57 kg

DRUGS (8)
  1. LYRICA [Suspect]
     Indication: FIBROMYALGIA
     Dosage: 150 MG, TID
     Route: 048
     Dates: start: 200705
  2. LYRICA [Suspect]
     Indication: PAIN
  3. PREMPRO [Concomitant]
     Indication: MENOPAUSE
     Dosage: CONJUGATED ESTROGENS 0.3 MG / MEDROXYPROGESTERONE ACETATE1.5 MG, QD
     Dates: start: 20130501
  4. XANAX [Concomitant]
     Dosage: 0.5 MG, UNK
  5. NORCO [Concomitant]
     Dosage: UNK
  6. LISINOPRIL [Concomitant]
     Indication: BLOOD PRESSURE ABNORMAL
     Dosage: 20 MG, UNK
  7. SOMA [Concomitant]
     Indication: PAIN
     Dosage: 350 MG, 2X/DAY (BID)
     Dates: start: 20130128
  8. ABILIFY [Concomitant]
     Indication: DEPRESSION
     Dosage: 30 MG, 1X/DAY (QHS)
     Dates: start: 20130501

REACTIONS (3)
  - Upper limb fracture [Unknown]
  - Dizziness [Unknown]
  - Fall [Unknown]
